FAERS Safety Report 15631036 (Version 1)
Quarter: 2018Q4

REPORT INFORMATION
  Report Type: Report from Study
  Country: IT (occurrence: IT)
  Receive Date: 20181119
  Receipt Date: 20181119
  Transmission Date: 20190205
  Serious: Yes (Other)
  Sender: FDA-Public Use
  Company Number: IT-BRISTOL-MYERS SQUIBB COMPANY-BMS-2018-105068

PATIENT
  Age: 78 Year
  Sex: Female

DRUGS (4)
  1. TRIATEC                            /00116401/ [Suspect]
     Active Substance: ACETAMINOPHEN\CODEINE PHOSPHATE
     Indication: HYPERTENSION
     Dosage: 1 DF=1 T,1 DAY
     Route: 048
     Dates: start: 20170130
  2. LUVION                             /00839101/ [Suspect]
     Active Substance: CANRENONE
     Indication: HYPERTENSION
     Dosage: 1 DF=1T,1DAY UNK
     Route: 048
     Dates: start: 20170130
  3. WARFARIN SODIUM. [Suspect]
     Active Substance: WARFARIN SODIUM
     Indication: THROMBOSIS PROPHYLAXIS
     Dosage: 1 DF= 1T 1 DAY
     Route: 048
     Dates: start: 20170130
  4. PANTORC [Concomitant]
     Active Substance: PANTOPRAZOLE SODIUM
     Indication: PRODUCT USED FOR UNKNOWN INDICATION
     Dosage: UNK
     Route: 065

REACTIONS (2)
  - Therapy non-responder [Recovering/Resolving]
  - Hypertension [Recovering/Resolving]

NARRATIVE: CASE EVENT DATE: 20180924
